FAERS Safety Report 7906964-3 (Version None)
Quarter: 2011Q4

REPORT INFORMATION
  Report Type: 
  Country: None (occurrence: None)
  Receive Date: 20111110
  Receipt Date: 20110301
  Transmission Date: 20120403
  Serious: Yes (Hospitalization, Other)
  Sender: FDA-Public Use
  Company Number: US-BAYER-2011-002777

PATIENT
  Sex: Male

DRUGS (4)
  1. HYPNOTICS AND SEDATIVES [Concomitant]
     Dosage: AT BEDTIME
  2. NEXAVAR [Suspect]
     Indication: RENAL CELL CARCINOMA
     Dosage: 1 PILL
     Route: 048
     Dates: start: 20101229, end: 20110117
  3. VICODIN [Concomitant]
     Indication: PAIN
  4. NEXAVAR [Suspect]
     Indication: THYROID CANCER
     Dosage: 200 MG, QD
     Route: 048
     Dates: start: 20110126

REACTIONS (16)
  - PRURITUS [None]
  - PALMAR-PLANTAR ERYTHRODYSAESTHESIA SYNDROME [None]
  - INSOMNIA [None]
  - BURNING SENSATION [None]
  - SKIN EXFOLIATION [None]
  - SKIN INDURATION [None]
  - PAIN OF SKIN [None]
  - HYPERAESTHESIA [None]
  - SKIN TIGHTNESS [None]
  - SKIN DISCOLOURATION [None]
  - SKIN FISSURES [None]
  - DYSPNOEA [None]
  - ARTHRALGIA [None]
  - NERVOUSNESS [None]
  - PAIN IN EXTREMITY [None]
  - ALOPECIA [None]
